FAERS Safety Report 6567544-8 (Version None)
Quarter: 2010Q1

REPORT INFORMATION
  Report Type: 
  Country: None (occurrence: None)
  Receive Date: 20100202
  Receipt Date: 20100120
  Transmission Date: 20100710
  Serious: Yes (Hospitalization)
  Sender: FDA-Public Use
  Company Number: FR-ELI_LILLY_AND_COMPANY-FR200911000394

PATIENT
  Age: 43 Year
  Sex: Male

DRUGS (9)
  1. ZYPREXA [Suspect]
     Route: 048
     Dates: start: 20090801, end: 20090807
  2. OFLOCET [Concomitant]
     Indication: PROSTATITIS
     Dosage: 2 MG, UNK
     Route: 048
     Dates: start: 20090722, end: 20090813
  3. RIVOTRIL [Concomitant]
     Dosage: 2 MG, UNK
     Route: 048
  4. SUBUTEX [Concomitant]
     Dosage: 8 MG, UNK
  5. SUBUTEX [Concomitant]
     Dosage: 2 MG, UNK
  6. PARACETAMOL [Concomitant]
  7. STERDEX [Concomitant]
  8. COPEGUS [Concomitant]
     Dosage: 200 MG, UNK
     Route: 048
  9. PEGASYS [Concomitant]
     Dosage: 180 UG, UNK
     Route: 042

REACTIONS (2)
  - DRUG RASH WITH EOSINOPHILIA AND SYSTEMIC SYMPTOMS [None]
  - ERYTHEMA [None]
